FAERS Safety Report 18996953 (Version 2)
Quarter: 2021Q2

REPORT INFORMATION
  Report Type: Report from Study
  Country: DE (occurrence: DE)
  Receive Date: 20210311
  Receipt Date: 20210409
  Transmission Date: 20210717
  Serious: Yes (Hospitalization, Other)
  Sender: FDA-Public Use
  Company Number: NVSC2021DE052149

PATIENT
  Sex: Female

DRUGS (2)
  1. TRAMETINIB [Suspect]
     Active Substance: TRAMETINIB
     Indication: MALIGNANT MELANOMA
     Dosage: 2 MG
     Route: 048
     Dates: start: 20200910, end: 20210205
  2. DABRAFENIB [Suspect]
     Active Substance: DABRAFENIB
     Indication: MALIGNANT MELANOMA
     Dosage: 300 MG
     Route: 048
     Dates: start: 20200910, end: 20210205

REACTIONS (5)
  - Hilar lymphadenopathy [Recovering/Resolving]
  - Erythema nodosum [Recovering/Resolving]
  - Polyarthritis [Recovering/Resolving]
  - Sarcoidosis [Recovering/Resolving]
  - Lymphadenopathy mediastinal [Recovering/Resolving]

NARRATIVE: CASE EVENT DATE: 20210116
